FAERS Safety Report 6882328-9 (Version None)
Quarter: 2010Q3

REPORT INFORMATION
  Report Type: 
  Country: None (occurrence: None)
  Receive Date: 20100729
  Receipt Date: 20100113
  Transmission Date: 20110219
  Serious: No
  Sender: FDA-Public Use
  Company Number: US-MYLANLABS-2009S1021455

PATIENT
  Age: 58 Year
  Sex: Female
  Weight: 57.61 kg

DRUGS (2)
  1. LEVOTHYROXINE SODIUM [Suspect]
     Indication: HYPOTHYROIDISM
     Route: 048
     Dates: start: 20091110, end: 20091120
  2. LEVOTHYROXINE SODIUM [Suspect]
     Route: 048
     Dates: start: 20091110, end: 20091120

REACTIONS (6)
  - DRUG EFFECT INCREASED [None]
  - HEART RATE INCREASED [None]
  - HYPERTHYROIDISM [None]
  - PALPITATIONS [None]
  - THYROID FUNCTION TEST ABNORMAL [None]
  - TREMOR [None]
